FAERS Safety Report 10150400 (Version 2)
Quarter: 2014Q2

REPORT INFORMATION
  Report Type: Report from Study
  Country: US (occurrence: US)
  Receive Date: 20140502
  Receipt Date: 20140506
  Transmission Date: 20141212
  Serious: Yes (Hospitalization, Other)
  Sender: FDA-Public Use
  Company Number: US-ABBVIE-14P-163-1231360-00

PATIENT
  Sex: Female

DRUGS (8)
  1. HUMIRA [Suspect]
     Indication: CROHN^S DISEASE
  2. UNKNOWN MEDICATION [Concomitant]
     Indication: GASTROOESOPHAGEAL REFLUX DISEASE
  3. NEXIUM [Concomitant]
     Indication: GASTROOESOPHAGEAL REFLUX DISEASE
  4. JANUVIA [Concomitant]
     Indication: ANTICOAGULANT THERAPY
     Dosage: DAILY
  5. LISINOPRIL [Concomitant]
     Indication: HYPERTENSION
  6. FERROUS SULFATE [Concomitant]
     Indication: ANAEMIA
  7. LANTUS [Concomitant]
     Indication: PRODUCT USED FOR UNKNOWN INDICATION
     Dosage: INSULIN (EVERY NIGHT)
     Route: 058
  8. HUMALOG [Concomitant]
     Indication: BLOOD GLUCOSE INCREASED
     Dosage: INSULIN
     Route: 058

REACTIONS (8)
  - Pneumothorax [Unknown]
  - Pneumonia [Recovered/Resolved]
  - Asthenia [Unknown]
  - Abasia [Unknown]
  - Stoma site irritation [Unknown]
  - Gastrointestinal stoma complication [Unknown]
  - Gastrooesophageal reflux disease [Unknown]
  - Drug ineffective [Unknown]
